FAERS Safety Report 4768912-7 (Version None)
Quarter: 2005Q3

REPORT INFORMATION
  Report Type: 
  Country: None (occurrence: None)
  Receive Date: 20050914
  Receipt Date: 20050914
  Transmission Date: 20060218
  Serious: Yes (Hospitalization)
  Sender: FDA-Public Use
  Company Number: 084-05

PATIENT
  Sex: Female

DRUGS (1)
  1. INDOCIN SR [Suspect]
     Dosage: 75 MG PO QAM
     Route: 048

REACTIONS (2)
  - BLOOD CREATINE INCREASED [None]
  - NEPHROPATHY TOXIC [None]
